FAERS Safety Report 20801062 (Version 1)
Quarter: 2022Q2

REPORT INFORMATION
  Report Type: Report from Study
  Country: AR (occurrence: AR)
  Receive Date: 20220509
  Receipt Date: 20220509
  Transmission Date: 20220720
  Serious: Yes (Other)
  Sender: FDA-Public Use
  Company Number: AR-NOVARTISPH-NVSC2022AR105520

PATIENT
  Sex: Female

DRUGS (1)
  1. EXFORGE [Suspect]
     Active Substance: AMLODIPINE BESYLATE\VALSARTAN
     Indication: Hypertension
     Dosage: 1 DOSAGE FORM, QD (320/10 MG) STARTED 20 YEARS AGO
     Route: 065

REACTIONS (10)
  - Chronic obstructive pulmonary disease [Recovering/Resolving]
  - Lung disorder [Recovering/Resolving]
  - Asthma [Recovering/Resolving]
  - Nervousness [Recovering/Resolving]
  - Memory impairment [Recovering/Resolving]
  - Neuralgia [Recovering/Resolving]
  - Sciatica [Recovering/Resolving]
  - Osteoporosis [Recovering/Resolving]
  - Back pain [Recovering/Resolving]
  - Pain [Unknown]
